FAERS Safety Report 7459725-6 (Version None)
Quarter: 2011Q2

REPORT INFORMATION
  Report Type: 
  Country: None (occurrence: None)
  Receive Date: 20110505
  Receipt Date: 20110504
  Transmission Date: 20111010
  Serious: Yes (Death, Hospitalization)
  Sender: FDA-Public Use
  Company Number: US-B.I. PHARMACEUTICALS,INC./RIDGEFIELD-2011-BP-11087BP

PATIENT
  Age: 63 Year
  Sex: Male

DRUGS (4)
  1. PRADAXA [Suspect]
     Indication: ATRIAL FIBRILLATION
     Dosage: 300 MG
  2. STATIN [Concomitant]
  3. BETA BLOCKER [Concomitant]
  4. ASPIRIN [Concomitant]

REACTIONS (2)
  - EMBOLIC STROKE [None]
  - GASTROINTESTINAL HAEMORRHAGE [None]
